FAERS Safety Report 15028060 (Version 1)
Quarter: 2018Q2

REPORT INFORMATION
  Report Type: Spontaneous
  Country: PT (occurrence: PT)
  Receive Date: 20180619
  Receipt Date: 20180619
  Transmission Date: 20180711
  Serious: Yes (Other)
  Sender: FDA-Public Use
  Company Number: PT-B.I. PHARMACEUTICALS,INC./RIDGEFIELD-2018-BI-030831

PATIENT
  Age: 67 Year
  Sex: Male

DRUGS (17)
  1. CHLORELLA VULGARIS [Interacting]
     Active Substance: CHLORELLA VULGARIS
     Dosage: FORM-PILLS. RESTARTED IN MIDDLE OF MARCH TWO WEEKS LATER
     Route: 065
  2. ATORVASTATIN [Concomitant]
     Active Substance: ATORVASTATIN
     Indication: PRODUCT USED FOR UNKNOWN INDICATION
     Route: 065
  3. VITAMIN-E [Concomitant]
     Indication: SUPPLEMENTATION THERAPY
     Dosage: FORM-PILLS, DURATION-14 DAYS UNTIL ONE DAY BEFORE THE SECOND DOSE OF CHEMOTHERAPY (END FEBRUARY).
     Route: 065
  4. CHLORELLA VULGARIS [Interacting]
     Active Substance: CHLORELLA VULGARIS
     Indication: PRODUCT USED FOR UNKNOWN INDICATION
     Dosage: PILLS
     Route: 065
  5. SELENIUM [Concomitant]
     Active Substance: SELENIUM
     Indication: SUPPLEMENTATION THERAPY
     Dosage: FORM-PILLS?DURATION-14 DAYS UNTIL ONE DAY BEFORE THE SECOND DOSE OF CHEMOTHERAPY (END FEBRUARY).
     Route: 065
  6. SYMBICORT [Concomitant]
     Active Substance: BUDESONIDE\FORMOTEROL FUMARATE DIHYDRATE
     Indication: PRODUCT USED FOR UNKNOWN INDICATION
     Route: 065
  7. ALFUZOSIN [Concomitant]
     Active Substance: ALFUZOSIN
     Indication: PRODUCT USED FOR UNKNOWN INDICATION
     Route: 065
  8. SPIRIVA [Suspect]
     Active Substance: TIOTROPIUM BROMIDE MONOHYDRATE
     Indication: PRODUCT USED FOR UNKNOWN INDICATION
     Route: 065
  9. ZINC SULFATE [Concomitant]
     Active Substance: ZINC SULFATE\ZINC SULFATE ANHYDROUS
     Indication: SUPPLEMENTATION THERAPY
     Dosage: FORM-PILLS, DURATION-14 DAYS UNTIL ONE DAY BEFORE THE SECOND DOSE OF CHEMOTHERAPY (END FEBRUARY).
     Route: 065
  10. PACLITAXEL. [Interacting]
     Active Substance: PACLITAXEL
     Indication: PRODUCT USED FOR UNKNOWN INDICATION
     Dosage: DOSE: 165 MG/M2
     Route: 065
  11. TURMERIC [Interacting]
     Active Substance: HERBALS\TURMERIC
     Indication: PRODUCT USED FOR UNKNOWN INDICATION
     Route: 048
  12. VITAMIN C [Concomitant]
     Active Substance: ASCORBIC ACID
     Indication: SUPPLEMENTATION THERAPY
     Dosage: FORM-PILLS, DURATION-14 DAYS UNTIL ONE DAY BEFORE THE SECOND DOSE OF CHEMOTHERAPY (END FEBRUARY).
     Route: 065
  13. COLOSTRUM [Concomitant]
     Indication: PRODUCT USED FOR UNKNOWN INDICATION
     Route: 065
  14. CARBOPLATIN. [Suspect]
     Active Substance: CARBOPLATIN
     Indication: PRODUCT USED FOR UNKNOWN INDICATION
     Dosage: DOSE: 275 MG/M2 (BSA: 1.82 M2) WITH BI-MONTHLY FREQUENCY
     Route: 065
  15. METFORMIN AND SITAGLIPTIN [Concomitant]
     Active Substance: METFORMIN\SITAGLIPTIN
     Indication: PRODUCT USED FOR UNKNOWN INDICATION
     Route: 065
  16. MILK THISTLE [Concomitant]
     Active Substance: DIETARY SUPPLEMENT\HERBALS\MILK THISTLE
     Indication: SUPPLEMENTATION THERAPY
     Dosage: DOSE-300 MG WITH 1.5 % OF SILYMARIN/3 X DAY, FORM-PILLS?TILL 1 DAY BEFORE THE 2ND DOSE OF CHEMO.
     Route: 065
  17. VITAMIN-A [Concomitant]
     Active Substance: VITAMIN A
     Indication: SUPPLEMENTATION THERAPY
     Dosage: FORM-PILLS, DURATION-14 DAYS UNTIL ONE DAY BEFORE THE SECOND DOSE OF CHEMOTHERAPY (END FEBRUARY).
     Route: 065

REACTIONS (7)
  - Jaundice [Recovered/Resolved]
  - Toxicity to various agents [Unknown]
  - Herbal interaction [Unknown]
  - Rash erythematous [Unknown]
  - Product contamination microbial [Unknown]
  - Hepatitis toxic [Recovered/Resolved]
  - Pruritus [Unknown]
